FAERS Safety Report 16600024 (Version 4)
Quarter: 2019Q4

REPORT INFORMATION
  Report Type: Report from Study
  Country: ES (occurrence: ES)
  Receive Date: 20190719
  Receipt Date: 20191115
  Transmission Date: 20200122
  Serious: Yes (Hospitalization)
  Sender: FDA-Public Use
  Company Number: ES-JNJFOC-20190727254

PATIENT
  Age: 52 Year
  Sex: Male
  Weight: 62 kg

DRUGS (18)
  1. ACFOL [Concomitant]
     Active Substance: FOLIC ACID
     Dosage: 5 MG, QD
  2. BECLOMETHASONE                     /00212601/ [Concomitant]
     Active Substance: BECLOMETHASONE
  3. VENTOLIN [Concomitant]
     Active Substance: ALBUTEROL SULFATE
     Route: 055
  4. POSACONAZOLE [Concomitant]
     Active Substance: POSACONAZOLE
     Dosage: 300 MG, QD
  5. CARIAX GINGIVAL [Concomitant]
     Dosage: 500 ML, Q 8 HOURS
     Route: 048
  6. POTASSIUM [Concomitant]
     Active Substance: POTASSIUM
     Dosage: 1 TABLET, Q 12 HOURS
     Route: 048
  7. AMOXICILLIN. [Concomitant]
     Active Substance: AMOXICILLIN
     Dosage: 500 MG, Q 12 HOURS
  8. ZOPICLONE [Concomitant]
     Active Substance: ZOPICLONE
     Dosage: 1 TABLET, QD
     Route: 048
  9. AMLODIPINE [Concomitant]
     Active Substance: AMLODIPINE BESYLATE
     Dosage: 5 MG, Q AM
  10. THEALOZ [Concomitant]
     Active Substance: TREHALOSE
     Dosage: 1 GTT, Q 8 HOURS
     Route: 047
  11. SEPTRAN                            /00086101/ [Concomitant]
     Dosage: 1 TABLET, Q 12 HOURS, ON SATURDAY AND SUNDAY
     Route: 048
  12. OMEPRAZOLE. [Concomitant]
     Active Substance: OMEPRAZOLE
     Route: 048
  13. MONTELUKAST [Concomitant]
     Active Substance: MONTELUKAST SODIUM
     Route: 055
  14. TACROLIMUS. [Concomitant]
     Active Substance: TACROLIMUS
     Dosage: 1 RINSE, QD
     Route: 048
  15. ACYCLOVIR                          /00587301/ [Concomitant]
     Active Substance: ACYCLOVIR
     Dosage: 200 MG, Q 12 HOURS
  16. MYCOSTATIN [Concomitant]
     Active Substance: NYSTATIN
     Dosage: 5 ML, Q 12 HOURS
     Route: 048
  17. IBRUTINIB [Suspect]
     Active Substance: IBRUTINIB
     Indication: CHRONIC GRAFT VERSUS HOST DISEASE
     Route: 065
     Dates: start: 20180822, end: 20190709
  18. AZITHROMYCIN ANHYDROUS. [Concomitant]
     Active Substance: AZITHROMYCIN ANHYDROUS
     Dosage: 250 MG, MONDAY, WEDNESDAY, FRIDAY

REACTIONS (2)
  - Atrial fibrillation [Recovered/Resolved]
  - Pericardial effusion [Recovered/Resolved]

NARRATIVE: CASE EVENT DATE: 20190709
